FAERS Safety Report 7735938-0 (Version None)
Quarter: 2011Q3

REPORT INFORMATION
  Report Type: 
  Country: None (occurrence: None)
  Receive Date: 20110817
  Receipt Date: 20101116
  Transmission Date: 20111222
  Serious: No
  Sender: FDA-Public Use
  Company Number: 20107981

PATIENT

DRUGS (1)
  1. LIORESAL [Suspect]
     Indication: MUSCLE SPASTICITY
     Dosage: 959.5 MCG, DAILY, INTRATHECAL
     Route: 037

REACTIONS (7)
  - HYPERTONIA [None]
  - PAIN [None]
  - PRURITUS [None]
  - MUSCLE SPASMS [None]
  - MUSCLE SPASTICITY [None]
  - THERAPY CESSATION [None]
  - CONDITION AGGRAVATED [None]
